FAERS Safety Report 17561145 (Version 2)
Quarter: 2020Q1

REPORT INFORMATION
  Report Type: Report from Study
  Country: US (occurrence: US)
  Receive Date: 20200319
  Receipt Date: 20200327
  Transmission Date: 20200409
  Serious: Yes (Other)
  Sender: FDA-Public Use
  Company Number: US-SHIRE-US202010165

PATIENT
  Age: 36 Year
  Sex: Female

DRUGS (1)
  1. HUMAN IMMUNOGLOBULIN; HYALURONIDASE [Suspect]
     Active Substance: HUMAN IMMUNOGLOBULIN G\HYALURONIDASE RECOMBINANT HUMAN
     Indication: PRIMARY IMMUNODEFICIENCY SYNDROME
     Dosage: 15 GRAM, 1X/2WKS
     Route: 065

REACTIONS (5)
  - Pneumonia [Unknown]
  - Unevaluable event [Unknown]
  - Immunoglobulins decreased [Unknown]
  - Malaise [Unknown]
  - Sinusitis [Unknown]

NARRATIVE: CASE EVENT DATE: 20200316
